FAERS Safety Report 9931582 (Version 1)
Quarter: 2014Q1

REPORT INFORMATION
  Report Type: Spontaneous
  Country: DE (occurrence: None)
  Receive Date: 20140224
  Receipt Date: 20140224
  Transmission Date: 20141002
  Serious: Yes (Other)
  Sender: FDA-Public Use
  Company Number: NGX_02250_2014

PATIENT
  Age: 75 Year
  Sex: Male

DRUGS (3)
  1. QUTENZA (CAPSAICIN) PATCH 179 MG [Suspect]
     Indication: NEURALGIA
     Dosage: PATCH DF TOPICAL
     Dates: start: 20090114
  2. TILIDIN [Concomitant]
  3. GABAPENTIN [Concomitant]

REACTIONS (1)
  - Herpes zoster [None]
